FAERS Safety Report 4657504-6 (Version None)
Quarter: 2005Q2

REPORT INFORMATION
  Report Type: 
  Country: None (occurrence: None)
  Receive Date: 20050506
  Receipt Date: 20050425
  Transmission Date: 20051028
  Serious: Yes (Hospitalization, Other)
  Sender: FDA-Public Use
  Company Number: HQWYE327426APR05

PATIENT
  Age: 44 Year
  Sex: Female

DRUGS (14)
  1. RAPAMUNE [Suspect]
     Indication: PROPHYLAXIS AGAINST TRANSPLANT REJECTION
     Dosage: SEE IMAGE
     Route: 048
     Dates: start: 20040323, end: 20050313
  2. RAPAMUNE [Suspect]
     Indication: PROPHYLAXIS AGAINST TRANSPLANT REJECTION
     Dosage: SEE IMAGE
     Route: 048
     Dates: start: 20050314
  3. NEORAL [Suspect]
     Indication: IMMUNOSUPPRESSANT DRUG THERAPY
     Dosage: 150 MG 1X PER 1 DAY, ORAL
     Route: 048
  4. PREDNISONE [Concomitant]
  5. DAPSONE [Concomitant]
  6. MULTIVITAMINS, PLAIN (MULTIVITAMINS, PLAIN) [Concomitant]
  7. FOLIC ACID [Concomitant]
  8. PROTONIX [Concomitant]
  9. TOPROL-XL [Concomitant]
  10. CATAPRES [Concomitant]
  11. NORVASC [Concomitant]
  12. FUROSEMIDE [Concomitant]
  13. PROZAC [Concomitant]
  14. PREMARIN [Concomitant]

REACTIONS (2)
  - BLOOD CREATININE INCREASED [None]
  - KIDNEY TRANSPLANT REJECTION [None]
